FAERS Safety Report 12173667 (Version 1)
Quarter: 2016Q1

REPORT INFORMATION
  Report Type: Spontaneous
  Country: US (occurrence: None)
  Receive Date: 20160311
  Receipt Date: 20160311
  Transmission Date: 20160526
  Serious: Yes (Hospitalization)
  Sender: FDA-Public Use
  Company Number: None

PATIENT
  Age: 54 Year
  Sex: Female
  Weight: 65.32 kg

DRUGS (2)
  1. FISH OIL [Concomitant]
     Active Substance: FISH OIL
  2. SUCCINYLCHOLINE [Suspect]
     Active Substance: SUCCINYLCHOLINE

REACTIONS (2)
  - Delayed recovery from anaesthesia [None]
  - Post procedural complication [None]

NARRATIVE: CASE EVENT DATE: 20160309
